FAERS Safety Report 7014563-3 (Version None)
Quarter: 2010Q3

REPORT INFORMATION
  Report Type: 
  Country: None (occurrence: None)
  Receive Date: 20100924
  Receipt Date: 20100924
  Transmission Date: 20110219
  Serious: Yes (Disabling)
  Sender: FDA-Public Use
  Company Number: None

PATIENT
  Age: 40 Year
  Sex: Female
  Weight: 56.246 kg

DRUGS (1)
  1. RIFAMPIN [Suspect]
     Indication: MYCOBACTERIUM AVIUM COMPLEX INFECTION
     Dosage: 300 MG EVERY 12 HOURS PO
     Route: 048
     Dates: start: 20100817, end: 20100920

REACTIONS (1)
  - LIVER FUNCTION TEST ABNORMAL [None]
